FAERS Safety Report 25756250 (Version 2)
Quarter: 2025Q3

REPORT INFORMATION
  Report Type: Spontaneous
  Country: JP (occurrence: JP)
  Receive Date: 20250903
  Receipt Date: 20250910
  Transmission Date: 20251021
  Serious: Yes (Other)
  Sender: NOVO NORDISK
  Company Number: JP-NOVOPROD-1505635

PATIENT
  Age: 2 Decade
  Sex: Male
  Weight: 65 kg

DRUGS (1)
  1. CONCIZUMAB [Suspect]
     Active Substance: CONCIZUMAB
     Indication: Factor VIII deficiency
     Dosage: 13 MG, QD
     Route: 058
     Dates: start: 20250328

REACTIONS (1)
  - Haemarthrosis [Recovered/Resolved]

NARRATIVE: CASE EVENT DATE: 20250818
